FAERS Safety Report 4638309-9 (Version None)
Quarter: 2005Q2

REPORT INFORMATION
  Report Type: 
  Country: None (occurrence: None)
  Receive Date: 20050418
  Receipt Date: 20040213
  Transmission Date: 20051028
  Serious: Yes (Hospitalization)
  Sender: FDA-Public Use
  Company Number: AU-MERCK-0402AUS00093

PATIENT
  Age: 66 Year
  Sex: Female

DRUGS (3)
  1. ZOCOR [Suspect]
     Route: 048
     Dates: end: 19980415
  2. ENALAPRIL MALEATE [Concomitant]
     Indication: ESSENTIAL HYPERTENSION
     Route: 048
  3. PREDNISONE [Concomitant]
     Route: 048
     Dates: start: 19780101

REACTIONS (9)
  - ASTHENIA [None]
  - BLOOD CREATINE PHOSPHOKINASE INCREASED [None]
  - DYSPHAGIA [None]
  - HYPOAESTHESIA [None]
  - MUSCULAR WEAKNESS [None]
  - MYOPATHY [None]
  - MYOSITIS [None]
  - NEUROPATHY PERIPHERAL [None]
  - WEIGHT DECREASED [None]
